FAERS Safety Report 16248877 (Version 1)
Quarter: 2019Q2

REPORT INFORMATION
  Report Type: Report from Study
  Country: US (occurrence: US)
  Receive Date: 20190429
  Receipt Date: 20190429
  Transmission Date: 20190711
  Serious: Yes (Death)
  Sender: FDA-Public Use
  Company Number: US-BEH-2019099510

PATIENT
  Age: 20 Year
  Sex: Female
  Weight: 45.35 kg

DRUGS (1)
  1. HIZENTRA [Suspect]
     Active Substance: HUMAN IMMUNOGLOBULIN G
     Indication: BONE MARROW FAILURE
     Dosage: 60 ML, Q3W
     Route: 058
     Dates: start: 2016, end: 201809

REACTIONS (2)
  - Infusion site pain [Recovered/Resolved]
  - Death [Fatal]
